FAERS Safety Report 11216000 (Version 1)
Quarter: 2015Q2

REPORT INFORMATION
  Report Type: Spontaneous
  Country: FR (occurrence: FR)
  Receive Date: 20150624
  Receipt Date: 20150624
  Transmission Date: 20150821
  Serious: Yes (Hospitalization)
  Sender: FDA-Public Use
  Company Number: FR-SA-2015SA088709

PATIENT
  Age: 10 Year
  Sex: Female

DRUGS (2)
  1. CLAFORAN [Concomitant]
     Active Substance: CEFOTAXIME SODIUM
     Dosage: DOSE:100 MG/KG/DAY
     Dates: start: 20150214
  2. RIFADINE [Suspect]
     Active Substance: RIFAMPIN
     Indication: PLEURAL EFFUSION
     Route: 065
     Dates: start: 20150214, end: 20150219

REACTIONS (3)
  - Jaundice [Recovered/Resolved]
  - Hyperlipasaemia [Not Recovered/Not Resolved]
  - Hepatocellular injury [Recovering/Resolving]

NARRATIVE: CASE EVENT DATE: 20150219
